FAERS Safety Report 9358813 (Version 1)
Quarter: 2013Q2

REPORT INFORMATION
  Report Type: Spontaneous
  Country: JP (occurrence: None)
  Receive Date: 20130617
  Receipt Date: 20130617
  Transmission Date: 20140414
  Serious: Yes (Other)
  Sender: FDA-Public Use
  Company Number: FK201301996

PATIENT
  Age: 63 Year
  Sex: Female

DRUGS (3)
  1. DEXAMETHASONE INJECTION (MANUFACTURER UNKNOWN) (DEXAMETHASONE SODIUM PHOSPHATE) (DEXAMETHASONE SODIUM PHOSPHATE) [Suspect]
     Indication: PLASMA CELL MYELOMA
     Dosage: 40 MG, DAY 1 THRU 4, INTRAVENOUS (NOT OTHERWISE SPECIFIED)
     Route: 042
  2. VINCRISTINE [Suspect]
     Indication: PLASMA CELL MYELOMA
     Dosage: 0.4 MG, DAYS 1 THRU 4 INTRAVENOUS, (NOT OTHERWISE SPECIFIED)
     Route: 042
  3. ADRIAMYCIN [Suspect]
     Indication: PLASMA CELL MYELOMA
     Dosage: 15 MG, DAYS 1 THRU 4, INTRAVENOUS, NOT OTHERWISE SPECIFIED
     Route: 042

REACTIONS (1)
  - Tumour lysis syndrome [None]
